FAERS Safety Report 6199702-9 (Version None)
Quarter: 2009Q2

REPORT INFORMATION
  Report Type: 
  Country: None (occurrence: None)
  Receive Date: 20090522
  Receipt Date: 20090515
  Transmission Date: 20091009
  Serious: Yes (Life-Threatening, Hospitalization)
  Sender: FDA-Public Use
  Company Number: GB-ABBOTT-08P-167-0443067-00

PATIENT
  Age: 11 Year
  Sex: Female

DRUGS (10)
  1. VALPROATE SODIUM [Suspect]
     Indication: EPILEPSY
     Route: 048
     Dates: start: 20071001, end: 20071030
  2. VALPROATE SODIUM [Suspect]
     Dosage: TAPERING REGIMEN WITH A 17% WEEKLY REDUCTION IN HER DAILY DOSE
     Dates: start: 20071001
  3. VALPROATE SODIUM [Suspect]
     Route: 048
  4. VALPROATE SODIUM [Suspect]
     Dates: start: 20020101, end: 20070101
  5. VALPROATE SODIUM [Suspect]
     Dosage: NOT REPORTED
  6. LAMICTAL [Interacting]
     Indication: EPILEPSY
     Route: 048
     Dates: start: 20071011, end: 20071022
  7. LAMICTAL [Interacting]
     Dates: start: 20071001, end: 20071022
  8. ERYTHROMYCIN [Concomitant]
     Indication: DRUG USE FOR UNKNOWN INDICATION
     Route: 065
  9. TRIMETHOPRIM [Concomitant]
     Indication: URINARY TRACT INFECTION
     Route: 065
  10. HERBAL REMEDY [Concomitant]
     Indication: EPILEPSY
     Dates: start: 20020101

REACTIONS (17)
  - ALOPECIA [None]
  - AZOTAEMIA [None]
  - BLOOD CREATINE PHOSPHOKINASE INCREASED [None]
  - COAGULOPATHY [None]
  - DRUG INTERACTION [None]
  - HYPERNATRAEMIA [None]
  - MALAISE [None]
  - MYOGLOBIN URINE PRESENT [None]
  - PLATELET COUNT DECREASED [None]
  - PYREXIA [None]
  - RASH MACULO-PAPULAR [None]
  - RENAL FAILURE [None]
  - RHABDOMYOLYSIS [None]
  - SEPSIS [None]
  - SOMNOLENCE [None]
  - STEVENS-JOHNSON SYNDROME [None]
  - TOXIC SHOCK SYNDROME STAPHYLOCOCCAL [None]
